FAERS Safety Report 17759606 (Version 1)
Quarter: 2020Q2

REPORT INFORMATION
  Report Type: Spontaneous
  Country: AU (occurrence: AU)
  Receive Date: 20200508
  Receipt Date: 20200508
  Transmission Date: 20200714
  Serious: Yes (Other)
  Sender: FDA-Public Use
  Company Number: AU-PFIZER INC-2019514252

PATIENT
  Age: 51 Year
  Sex: Female

DRUGS (1)
  1. DALACIN V [Suspect]
     Active Substance: CLINDAMYCIN PHOSPHATE
     Indication: DUODENITIS
     Dosage: QUARTER OF AN APPLICATOR AT NIGHT, TWICE WEEKLY
     Dates: start: 201911

REACTIONS (3)
  - Off label use [Unknown]
  - Colitis ulcerative [Unknown]
  - Product use in unapproved indication [Unknown]
